FAERS Safety Report 6346555-1 (Version None)
Quarter: 2009Q3

REPORT INFORMATION
  Report Type: 
  Country: None (occurrence: None)
  Receive Date: 20090909
  Receipt Date: 20090831
  Transmission Date: 20100115
  Serious: No
  Sender: FDA-Public Use
  Company Number: US-ELI_LILLY_AND_COMPANY-US200909000396

PATIENT
  Sex: Female

DRUGS (2)
  1. CYMBALTA [Suspect]
     Indication: MAJOR DEPRESSION
     Dates: end: 20090801
  2. SERZONE [Concomitant]
     Indication: MAJOR DEPRESSION

REACTIONS (2)
  - HEPATIC ENZYME INCREASED [None]
  - URINE COLOUR ABNORMAL [None]
